APPROVED DRUG PRODUCT: EPTIFIBATIDE
Active Ingredient: EPTIFIBATIDE
Strength: 75MG/100ML
Dosage Form/Route: INJECTABLE;INJECTION
Application: A091555 | Product #001
Applicant: TEVA PHARMACEUTICALS USA
Approved: Jun 5, 2015 | RLD: No | RS: No | Type: DISCN